FAERS Safety Report 18059303 (Version 11)
Quarter: 2020Q4

REPORT INFORMATION
  Report Type: Spontaneous
  Country: US (occurrence: US)
  Receive Date: 20200723
  Receipt Date: 20201227
  Transmission Date: 20210113
  Serious: Yes (Hospitalization, Other)
  Sender: FDA-Public Use
  Company Number: US-TEVA-2020-US-1804410

PATIENT
  Age: 55 Year
  Sex: Female

DRUGS (3)
  1. SYNRIBO [Suspect]
     Active Substance: OMACETAXINE MEPESUCCINATE
     Indication: NEOPLASM MALIGNANT
     Dosage: DOSAGE: 2.09MG/0.6ML, TWICE DAILY FOR 14 DAYS OF A 28 DAY CYCLE
     Route: 058
     Dates: start: 20200710
  2. MEDROL [Concomitant]
     Active Substance: METHYLPREDNISOLONE
  3. CLINDAMYCIN HCL [Concomitant]
     Active Substance: CLINDAMYCIN HYDROCHLORIDE
     Indication: SIALOADENITIS

REACTIONS (16)
  - Philadelphia chromosome positive [Unknown]
  - Rash [Unknown]
  - Pyrexia [Unknown]
  - Malaise [Unknown]
  - Pneumonia [Unknown]
  - Injection site erythema [Unknown]
  - Nausea [Unknown]
  - Nail discolouration [Unknown]
  - Injection site mass [Unknown]
  - Sialoadenitis [Unknown]
  - Injection site macule [Unknown]
  - White blood cell count increased [Unknown]
  - Hospitalisation [Unknown]
  - Pain [Unknown]
  - Asthenia [Unknown]
  - Alopecia [Unknown]

NARRATIVE: CASE EVENT DATE: 2020
